FAERS Safety Report 9589369 (Version 1)
Quarter: 2013Q4

REPORT INFORMATION
  Report Type: Spontaneous
  Country: US (occurrence: US)
  Receive Date: 20131003
  Receipt Date: 20131003
  Transmission Date: 20140711
  Serious: No
  Sender: FDA-Public Use
  Company Number: US-AMGEN-USASP2012070153

PATIENT
  Sex: Male
  Weight: 131.52 kg

DRUGS (6)
  1. ENBREL [Suspect]
     Indication: PSORIASIS
     Route: 058
  2. ENBREL [Suspect]
     Indication: PSORIATIC ARTHROPATHY
  3. LEVOTHYROXINE [Concomitant]
     Dosage: UNK
  4. LASIX                              /00032601/ [Concomitant]
     Dosage: UNK
  5. MELOXICAM [Concomitant]
     Dosage: UNK
  6. KLOR-CON [Concomitant]

REACTIONS (1)
  - Therapeutic response decreased [Unknown]
